FAERS Safety Report 4988428-2 (Version None)
Quarter: 2006Q2

REPORT INFORMATION
  Report Type: 
  Country: None (occurrence: None)
  Receive Date: 20060502
  Receipt Date: 20060420
  Transmission Date: 20061013
  Serious: Yes (Hospitalization)
  Sender: FDA-Public Use
  Company Number: FR-BRISTOL-MYERS SQUIBB COMPANY-13358064

PATIENT
  Age: 69 Year
  Sex: Male

DRUGS (11)
  1. ERBITUX [Suspect]
     Indication: COLORECTAL CANCER
     Dosage: 400 MG/M2 FIRST WEEK THEN 250 MG/M2 EACH WEEK.
     Route: 041
     Dates: start: 20060223, end: 20060330
  2. ELOXATIN [Suspect]
     Indication: COLORECTAL CANCER
     Route: 042
     Dates: start: 20060224, end: 20060331
  3. GEMZAR [Suspect]
     Indication: PANCREATIC CARCINOMA
     Route: 042
     Dates: start: 20060223, end: 20060330
  4. ATORVASTATIN CALCIUM [Concomitant]
     Indication: HYPERLIPIDAEMIA
  5. RAMIPRIL [Concomitant]
     Indication: HYPERTENSION
     Dates: start: 20060401
  6. AMLODIPINE [Concomitant]
     Indication: HYPERTENSION
     Dates: start: 20060401
  7. DL-LYSINE ACETYLSALICYLATE [Concomitant]
     Indication: CARDIOVASCULAR DISORDER
  8. GLIMEPIRIDE [Concomitant]
     Indication: DIABETES MELLITUS NON-INSULIN-DEPENDENT
  9. FENTANYL [Concomitant]
     Indication: PAIN
  10. MORPHINE [Concomitant]
     Indication: PAIN
  11. LANSOPRAZOLE [Concomitant]
     Indication: GASTROOESOPHAGEAL REFLUX DISEASE

REACTIONS (9)
  - ANAEMIA [None]
  - BLOOD GLUCOSE INCREASED [None]
  - CONDITION AGGRAVATED [None]
  - HYPONATRAEMIA [None]
  - LEUKOPENIA [None]
  - NAUSEA [None]
  - OEDEMA PERIPHERAL [None]
  - THROMBOCYTOPENIA [None]
  - VOMITING [None]
